FAERS Safety Report 16021892 (Version 2)
Quarter: 2022Q1

REPORT INFORMATION
  Report Type: Spontaneous
  Country: CA (occurrence: CA)
  Receive Date: 20190301
  Receipt Date: 20220307
  Transmission Date: 20220423
  Serious: Yes (Death, Other)
  Sender: FDA-Public Use
  Company Number: CA-AUROBINDO-AUR-APL-2019-010367

PATIENT
  Age: 7 Year
  Sex: Female

DRUGS (4)
  1. CEFPROZIL [Suspect]
     Active Substance: CEFPROZIL
     Indication: Antibiotic prophylaxis
     Dosage: UNK, 2 EVERY 1 DAY
     Route: 065
  2. PNEUMOCOCCAL VACCINE POLYVALENT NOS [Suspect]
     Active Substance: PNEUMOCOCCAL VACCINE POLYVALENT
     Indication: Immunisation
     Dosage: UNK, ONCE
     Route: 065
  3. PNEUMOVAX 23 [Suspect]
     Active Substance: PNEUMOCOCCAL VACCINE, POLYVALENT 23
     Indication: Immunisation
     Dosage: UNK
     Route: 065
  4. DIMENHYDRINATE [Concomitant]
     Active Substance: DIMENHYDRINATE
     Indication: Immunisation
     Dosage: UNK, ONCE
     Route: 065

REACTIONS (3)
  - Drug ineffective [Fatal]
  - Drug resistance [Fatal]
  - Meningitis pneumococcal [Fatal]
